FAERS Safety Report 25594542 (Version 2)
Quarter: 2025Q3

REPORT INFORMATION
  Report Type: Spontaneous
  Country: US (occurrence: US)
  Receive Date: 20250723
  Receipt Date: 20250813
  Transmission Date: 20251021
  Serious: Yes (Life-Threatening, Hospitalization)
  Sender: TEVA
  Company Number: US-TEVA-VS-3352218

PATIENT
  Age: 60 Year
  Sex: Female

DRUGS (4)
  1. GABAPENTIN [Suspect]
     Active Substance: GABAPENTIN
     Indication: Product used for unknown indication
     Route: 065
  2. BUPROPION [Suspect]
     Active Substance: BUPROPION
     Indication: Product used for unknown indication
     Route: 065
  3. ANASTROZOLE [Concomitant]
     Active Substance: ANASTROZOLE
     Indication: Breast cancer
     Route: 065
  4. QUETIAPINE [Suspect]
     Active Substance: QUETIAPINE
     Indication: Product used for unknown indication
     Route: 065

REACTIONS (12)
  - Cerebrovascular accident [Unknown]
  - Intentional overdose [Recovering/Resolving]
  - Coma [Recovered/Resolved]
  - Intentional product misuse [Recovering/Resolving]
  - Seizure [Unknown]
  - Hypotension [Unknown]
  - Areflexia [Recovering/Resolving]
  - Brain death [Unknown]
  - Shock [Unknown]
  - Neurotoxicity [Recovering/Resolving]
  - Lactic acidosis [Unknown]
  - Myoclonus [Recovering/Resolving]
